FAERS Safety Report 6292010-7 (Version None)
Quarter: 2009Q3

REPORT INFORMATION
  Report Type: 
  Country: None (occurrence: None)
  Receive Date: 20090729
  Receipt Date: 20090713
  Transmission Date: 20100115
  Serious: Yes (Hospitalization)
  Sender: FDA-Public Use
  Company Number: JPI-C-007490

PATIENT
  Age: 55 Year
  Sex: Female
  Weight: 114.76 kg

DRUGS (10)
  1. SODIUM OXYBATE (500 MILLIGRAM/MILLILITERS, SOLUTION) (SODIUM OXYBATE) [Suspect]
     Indication: FIBROMYALGIA
     Dosage: SEE IMAGE
     Route: 048
     Dates: start: 20090105, end: 20090120
  2. SODIUM OXYBATE (500 MILLIGRAM/MILLILITERS, SOLUTION) (SODIUM OXYBATE) [Suspect]
     Indication: FIBROMYALGIA
     Dosage: SEE IMAGE
     Route: 048
     Dates: start: 20090121, end: 20090202
  3. SODIUM OXYBATE (500 MILLIGRAM/MILLILITERS, SOLUTION) (SODIUM OXYBATE) [Suspect]
     Indication: FIBROMYALGIA
     Dosage: SEE IMAGE
     Route: 048
     Dates: start: 20090203, end: 20090330
  4. SODIUM OXYBATE (500 MILLIGRAM/MILLILITERS, SOLUTION) (SODIUM OXYBATE) [Suspect]
     Indication: FIBROMYALGIA
     Dosage: SEE IMAGE
     Route: 048
     Dates: start: 20090331, end: 20090530
  5. LEVOTHYROXINE SODIUM [Concomitant]
  6. ATENOLOL [Concomitant]
  7. NYSTATIN [Concomitant]
  8. METFORMIN [Concomitant]
  9. VITAMIN B-12 [Concomitant]
  10. CO Q10 (TABLETS) [Concomitant]

REACTIONS (7)
  - CONSTIPATION [None]
  - GASTRITIS [None]
  - GASTROINTESTINAL HYPOMOTILITY [None]
  - GASTROOESOPHAGEAL REFLUX DISEASE [None]
  - HAEMORRHOIDS [None]
  - UMBILICAL HERNIA [None]
  - URINARY TRACT INFECTION [None]
